FAERS Safety Report 5924055-8 (Version None)
Quarter: 2008Q4

REPORT INFORMATION
  Report Type: 
  Country: None (occurrence: None)
  Receive Date: 20081020
  Receipt Date: 20081016
  Transmission Date: 20090506
  Serious: Yes (Death, Other)
  Sender: FDA-Public Use
  Company Number: PHBS2008US06040

PATIENT
  Age: 19 Year
  Sex: Male

DRUGS (5)
  1. SIMULECT [Suspect]
     Indication: INTESTINAL TRANSPLANT
  2. INTERLEUKIN-2 [Suspect]
     Indication: INTESTINAL TRANSPLANT
  3. STEROIDS NOS [Suspect]
     Indication: INTESTINAL TRANSPLANT
  4. PROGRAF [Suspect]
     Indication: INTESTINAL TRANSPLANT
  5. RAPAMUNE [Suspect]
     Indication: INTESTINAL TRANSPLANT

REACTIONS (4)
  - ABDOMINAL SEPSIS [None]
  - DUODENAL PERFORATION [None]
  - INTESTINE TRANSPLANT REJECTION [None]
  - MULTI-ORGAN FAILURE [None]
